FAERS Safety Report 8843252 (Version 1)
Quarter: 2012Q4

REPORT INFORMATION
  Report Type: 
  Country: DE (occurrence: DE)
  Receive Date: 20121016
  Receipt Date: 20121016
  Transmission Date: 20130627
  Serious: Yes (Hospitalization, Congenital Anomaly, Other)
  Sender: FDA-Public Use
  Company Number: GXKR2012DE003194

PATIENT

DRUGS (4)
  1. SERTRALINE [Suspect]
     Dosage: Maternal dose: 100 [mg/d ]/ after week 8: 50 mg/d
     Route: 064
  2. FOLIC ACID [Concomitant]
     Dosage: Maternal dose: 0.8 [mg/d ] (gw 1.6 to 39.6)
     Route: 064
  3. EUPHORBIUM [Concomitant]
     Route: 064
  4. AMOXICILLIN + CLAVULANIC ACID [Concomitant]
     Route: 064

REACTIONS (9)
  - Large for dates baby [Unknown]
  - Patent ductus arteriosus [Recovering/Resolving]
  - Atrial septal defect [Unknown]
  - Left atrial dilatation [Unknown]
  - Congenital tricuspid valve incompetence [Unknown]
  - Agitation neonatal [Recovered/Resolved]
  - Hypertonia neonatal [Recovered/Resolved]
  - Neonatal respiratory distress syndrome [Recovered/Resolved]
  - Foetal exposure during pregnancy [Unknown]
